FAERS Safety Report 11779601 (Version 1)
Quarter: 2015Q4

REPORT INFORMATION
  Report Type: Report from Study
  Country: KR (occurrence: KR)
  Receive Date: 20151125
  Receipt Date: 20151125
  Transmission Date: 20160304
  Serious: Yes (Hospitalization)
  Sender: FDA-Public Use
  Company Number: KR-TEVA-610476ISR

PATIENT
  Age: 42 Year
  Sex: Female
  Weight: 58 kg

DRUGS (22)
  1. CARBOPLATIN. [Suspect]
     Active Substance: CARBOPLATIN
     Indication: TRIPLE NEGATIVE BREAST CANCER
     Dosage: AUC 4; DAY 1 OF FOUR 21-DAY CYCLES DURING CHEMOTHERAPY SEGMENT 1
     Route: 042
     Dates: start: 20150909
  2. PACLITAXEL. [Suspect]
     Active Substance: PACLITAXEL
     Indication: TRIPLE NEGATIVE BREAST CANCER
     Dosage: DAY 1 OF OF 21 WEEKLY CYCLES DURING CHEMOTHERAPY SEGMENT 1
     Route: 042
     Dates: start: 20150617
  3. GASTER [Concomitant]
     Active Substance: FAMOTIDINE
     Indication: GASTROOESOPHAGEAL REFLUX DISEASE
     Dosage: PREMEDICATION PACLITAXEL
     Route: 041
     Dates: start: 20150617
  4. FILGRASTIM [Concomitant]
     Active Substance: FILGRASTIM
     Indication: NEUTROPENIA
     Dosage: 300 MILLIGRAM DAILY;
     Route: 040
     Dates: start: 20151016, end: 20151018
  5. DOXORUBICIN [Suspect]
     Active Substance: DOXORUBICIN
     Indication: TRIPLE NEGATIVE BREAST CANCER
     Dosage: 2.8571 MG/M2 DAILY; DAY 1 OF FOUR 21-DAY CYCLES DURING CHEMOTHERAPY SEGMENT 2
     Route: 042
     Dates: start: 20151007
  6. ABT-888 [Suspect]
     Active Substance: VELIPARIB
     Indication: TRIPLE NEGATIVE BREAST CANCER
     Dosage: BLINDED: DAILY THRU CHEMOTHERAPY SEGMENT 1
     Route: 048
     Dates: start: 20150617
  7. DEXAMETHASONE. [Concomitant]
     Active Substance: DEXAMETHASONE
     Indication: PROPHYLAXIS
     Route: 040
  8. PEG FILGRASTIM [Concomitant]
     Indication: PROPHYLAXIS
     Route: 058
     Dates: start: 20151008
  9. CARBOPLATIN. [Suspect]
     Active Substance: CARBOPLATIN
     Dosage: AAUC 5; DAY 1 OF FOUR 21-DAY CYCLES DURING CHEMOTHERAPY SEGMENT 1
     Route: 042
     Dates: start: 20150717, end: 20150812
  10. FILGRASTIM [Concomitant]
     Active Substance: FILGRASTIM
     Dosage: 300 MICROGRAM DAILY;
     Route: 058
     Dates: start: 20150919, end: 20150919
  11. GASTER [Concomitant]
     Active Substance: FAMOTIDINE
     Dosage: PREMEDICATION PACLITAXEL
     Route: 041
     Dates: start: 20150617, end: 20150629
  12. MECKOOL [Concomitant]
     Indication: PROPHYLAXIS OF NAUSEA AND VOMITING
     Dosage: PREMEDICATION PACLITAXEL
     Route: 041
     Dates: start: 20150624
  13. DUPHALAC SYRUP [Concomitant]
     Active Substance: LACTULOSE
     Dosage: 15 ML DAILY;
     Route: 048
     Dates: start: 20150731, end: 20150801
  14. DUPHALAC SYRUP [Concomitant]
     Active Substance: LACTULOSE
     Dosage: 90 ML DAILY;
     Route: 048
     Dates: start: 20150730, end: 20150730
  15. MAGNESIUM OXIDE. [Concomitant]
     Active Substance: MAGNESIUM OXIDE
     Route: 048
     Dates: start: 20150802
  16. MAGNESIUM OXIDE. [Concomitant]
     Active Substance: MAGNESIUM OXIDE
     Dosage: 500 MILLIGRAM DAILY;
     Route: 048
     Dates: start: 20150720, end: 20150801
  17. DUPHALAC SYRUP [Concomitant]
     Active Substance: LACTULOSE
     Indication: CONSTIPATION
     Route: 048
     Dates: start: 20150802
  18. CARBOPLATIN. [Suspect]
     Active Substance: CARBOPLATIN
     Dosage: AUC 6; DAY 1 OF FOUR 21-DAY CYCLES DURING CHEMOTHERAPY SEGMENT 1
     Route: 042
     Dates: start: 20150617, end: 20150617
  19. CYCLOPHOSPHAMIDE. [Suspect]
     Active Substance: CYCLOPHOSPHAMIDE
     Indication: TRIPLE NEGATIVE BREAST CANCER
     Dosage: DAY 1 OF FOUR 21-DAY CYCLES DURING CHEMOTHERAPY SEGMENT 2
     Route: 042
     Dates: start: 20151007
  20. CHLORPHENIRAMINE. [Concomitant]
     Active Substance: CHLORPHENIRAMINE
  21. ALOXI [Concomitant]
     Active Substance: PALONOSETRON HYDROCHLORIDE
     Indication: PROPHYLAXIS OF NAUSEA AND VOMITING
     Dosage: PREMEDICATION PACLITAXEL
     Route: 041
     Dates: start: 20150617
  22. FILGRASTIM [Concomitant]
     Active Substance: FILGRASTIM
     Indication: FEBRILE NEUTROPENIA
     Dosage: 300 MICROGRAM DAILY;
     Route: 058
     Dates: start: 20150923, end: 20150923

REACTIONS (1)
  - Febrile neutropenia [Recovered/Resolved]

NARRATIVE: CASE EVENT DATE: 20151015
